FAERS Safety Report 23852850 (Version 2)
Quarter: 2024Q2

REPORT INFORMATION
  Report Type: Spontaneous
  Country: US (occurrence: None)
  Receive Date: 20240514
  Receipt Date: 20240516
  Transmission Date: 20240716
  Serious: Yes (Other)
  Sender: FDA-Public Use
  Company Number: US-ROCHE-3559492

PATIENT
  Age: 76 Year
  Sex: Male
  Weight: 82.174 kg

DRUGS (1)
  1. OCREVUS [Suspect]
     Active Substance: OCRELIZUMAB
     Indication: Multiple sclerosis
     Dosage: NEXT INFUSION ON 29/MAY/2024
     Route: 065
     Dates: start: 201711

REACTIONS (1)
  - Secondary progressive multiple sclerosis [Unknown]
